FAERS Safety Report 7699431-6 (Version None)
Quarter: 2011Q3

REPORT INFORMATION
  Report Type: 
  Country: None (occurrence: None)
  Receive Date: 20110820
  Receipt Date: 20100908
  Transmission Date: 20111222
  Serious: No
  Sender: FDA-Public Use
  Company Number: US-ALLERGAN-1011593US

PATIENT
  Age: 84 Year
  Sex: Male

DRUGS (4)
  1. SANCTURA XR [Suspect]
     Indication: HYPERTONIC BLADDER
     Dosage: 1 TAB, QD
     Route: 048
     Dates: start: 20100829
  2. MILK OF MAGNESIA TAB [Concomitant]
     Indication: CONSTIPATION
     Dosage: UNK
  3. LISINOPRIL [Concomitant]
     Indication: BLOOD PRESSURE
     Dosage: 30 MG, BID
     Route: 048
  4. CARVEDILOL [Concomitant]
     Dosage: 25 MG, BID
     Route: 048

REACTIONS (2)
  - CONSTIPATION [None]
  - DRY MOUTH [None]
